FAERS Safety Report 19870405 (Version 2)
Quarter: 2022Q2

REPORT INFORMATION
  Report Type: Spontaneous
  Country: US (occurrence: US)
  Receive Date: 20210922
  Receipt Date: 20220513
  Transmission Date: 20220721
  Serious: No
  Sender: FDA-Public Use
  Company Number: US-PFIZER INC-202101225648

PATIENT
  Age: 74 Year
  Sex: Female
  Weight: 73.48 kg

DRUGS (1)
  1. XALATAN [Suspect]
     Active Substance: LATANOPROST
     Indication: Glaucoma
     Dosage: 1 DROP IN EACH EYE AT NIGHT
     Route: 047
     Dates: start: 2004

REACTIONS (4)
  - Fall [Unknown]
  - Skin laceration [Unknown]
  - Wound complication [Unknown]
  - Tachycardia [Unknown]
